FAERS Safety Report 21097165 (Version 1)
Quarter: 2022Q3

REPORT INFORMATION
  Report Type: Spontaneous
  Country: US (occurrence: US)
  Receive Date: 20220719
  Receipt Date: 20220719
  Transmission Date: 20221027
  Serious: No
  Sender: FDA-Public Use
  Company Number: US-BRACCO-2021US03092

PATIENT
  Sex: Male

DRUGS (6)
  1. AXUMIN [Suspect]
     Active Substance: FLUCICLOVINE F-18
     Indication: Positron emission tomogram
     Dosage: 10.6 MCI, SINGLE, INTO THE RIGHT FOREARM
     Route: 042
  2. SODIUM CHLORIDE [Concomitant]
     Active Substance: SODIUM CHLORIDE
     Indication: Positron emission tomogram
     Dosage: 30 ML, SINGLE
  3. LORAZEPAM [Concomitant]
     Active Substance: LORAZEPAM
  4. MELATONIN [Concomitant]
     Active Substance: MELATONIN
  5. NIACIN [Concomitant]
     Active Substance: NIACIN
  6. PRILOSEC [Concomitant]
     Active Substance: OMEPRAZOLE MAGNESIUM

REACTIONS (2)
  - Positron emission tomogram abnormal [Unknown]
  - No adverse event [None]
